FAERS Safety Report 4474620-2 (Version None)
Quarter: 2004Q4

REPORT INFORMATION
  Report Type: 
  Country: None (occurrence: None)
  Receive Date: 20041008
  Receipt Date: 20040917
  Transmission Date: 20050328
  Serious: Yes (Hospitalization)
  Sender: FDA-Public Use
  Company Number: USA040978652

PATIENT
  Age: 13 Year
  Sex: Male

DRUGS (3)
  1. STRATTERA [Suspect]
     Dosage: 60 MG/ 1 DAY
  2. ADDERALL 20 [Concomitant]
  3. ORAP [Concomitant]

REACTIONS (7)
  - CHEST PAIN [None]
  - ELECTROCARDIOGRAM T WAVE INVERSION [None]
  - FLUSHING [None]
  - HEADACHE [None]
  - HYPERTENSION [None]
  - TACHYCARDIA [None]
  - TROPONIN INCREASED [None]
